FAERS Safety Report 21230554 (Version 12)
Quarter: 2024Q2

REPORT INFORMATION
  Report Type: Report from Study
  Country: US (occurrence: US)
  Receive Date: 20220818
  Receipt Date: 20240628
  Transmission Date: 20240716
  Serious: Yes (Hospitalization, Other)
  Sender: FDA-Public Use
  Company Number: US-ABBVIE-22K-163-4447667-00

PATIENT
  Sex: Female

DRUGS (7)
  1. VENCLEXTA [Suspect]
     Active Substance: VENETOCLAX
     Indication: Mantle cell lymphoma
     Dosage: FORM STRENGTH 100MG
     Route: 048
     Dates: start: 20200227
  2. VENCLEXTA [Suspect]
     Active Substance: VENETOCLAX
     Indication: Mantle cell lymphoma
     Dosage: LAST ADMIN DATE: 2020?FORM STRENGTH 100MG
     Route: 048
     Dates: start: 20200123
  3. VENCLEXTA [Suspect]
     Active Substance: VENETOCLAX
     Indication: Mantle cell lymphoma
     Dosage: FORM STRENGTH: 100MG
     Route: 048
     Dates: start: 20200122, end: 20200122
  4. VENCLEXTA [Suspect]
     Active Substance: VENETOCLAX
     Indication: Mantle cell lymphoma
     Dosage: FORM STRENGTH 100MG, FIRST ADMIN DATE: 2020
     Route: 048
  5. VENCLEXTA [Suspect]
     Active Substance: VENETOCLAX
     Indication: Mantle cell lymphoma
     Dosage: FORM STRENGTH 100MG, FIRST ADMIN DATE: 2020
     Route: 048
     Dates: end: 20240625
  6. BRUKINSA [Concomitant]
     Active Substance: ZANUBRUTINIB
     Indication: Mantle cell lymphoma
     Route: 048
     Dates: start: 20200227
  7. BRUKINSA [Concomitant]
     Active Substance: ZANUBRUTINIB
     Indication: Mantle cell lymphoma
     Route: 048

REACTIONS (20)
  - COVID-19 [Unknown]
  - Bronchopulmonary aspergillosis [Unknown]
  - Blood sodium decreased [Unknown]
  - Haemorrhage subcutaneous [Unknown]
  - Pneumonia bacterial [Unknown]
  - Contusion [Unknown]
  - Dyspnoea [Unknown]
  - Platelet count decreased [Unknown]
  - Alopecia [Unknown]
  - Grief reaction [Unknown]
  - Urinary tract infection [Unknown]
  - Depression [Unknown]
  - Chronic obstructive pulmonary disease [Unknown]
  - Rhinovirus infection [Unknown]
  - Diarrhoea [Unknown]
  - Cataract [Unknown]
  - Morning sickness [Unknown]
  - Blood potassium decreased [Unknown]
  - Immunodeficiency [Unknown]
  - Eye haemorrhage [Unknown]

NARRATIVE: CASE EVENT DATE: 20220101
